FAERS Safety Report 19788933 (Version 2)
Quarter: 2021Q4

REPORT INFORMATION
  Report Type: Spontaneous
  Country: GB (occurrence: GB)
  Receive Date: 20210904
  Receipt Date: 20211014
  Transmission Date: 20220303
  Serious: Yes (Death, Other)
  Sender: FDA-Public Use
  Company Number: GB-PERRIGO-21GB011137

PATIENT
  Age: 44 Year
  Sex: Female

DRUGS (4)
  1. SERTRALINE [Suspect]
     Active Substance: SERTRALINE HYDROCHLORIDE
     Indication: Product used for unknown indication
     Dosage: UNK (THERAPEUTIC LEVELS OF SERTRALINE AND DIPHENHYDRAMINE)
     Route: 065
  2. ALCOHOL [Suspect]
     Active Substance: ALCOHOL
     Indication: Product used for unknown indication
     Dosage: UNK (HIGH LEVELS OF ALCOHOL IN THE WOMAN?S SYSTEM - AROUND THREE TIMES THE DRINK DRIVE LIMIT)
     Route: 065
  3. COCAINE [Suspect]
     Active Substance: COCAINE
     Indication: Product used for unknown indication
     Dosage: UNK (RECREATIONAL LEVELS OF COCAINE)
     Route: 065
  4. NYTOL [Suspect]
     Active Substance: DIPHENHYDRAMINE HYDROCHLORIDE
     Indication: Product used for unknown indication
     Dosage: UNK (THERAPEUTIC LEVELS OF SERTRALINE AND DIPHENHYDRAMINE)
     Route: 065

REACTIONS (3)
  - Skull fracture [Fatal]
  - Brain injury [Fatal]
  - Fall [Unknown]
